FAERS Safety Report 4551070-1 (Version None)
Quarter: 2005Q1

REPORT INFORMATION
  Report Type: 
  Country: None (occurrence: None)
  Receive Date: 20050106
  Receipt Date: 20041228
  Transmission Date: 20050727
  Serious: Yes (Death, Hospitalization)
  Sender: FDA-Public Use
  Company Number: 2004118603

PATIENT
  Age: 61 Year
  Sex: Female

DRUGS (10)
  1. AZULFIDINE EN-TABS [Suspect]
     Indication: RHEUMATOID ARTHRITIS
     Dosage: SEE IMAGE
     Route: 048
     Dates: start: 20040721, end: 20041120
  2. AZULFIDINE EN-TABS [Suspect]
     Indication: RHEUMATOID ARTHRITIS
     Dosage: SEE IMAGE
     Route: 048
     Dates: start: 20000724
  3. BUCILLAMINE (BUCILLAMINE) [Suspect]
     Indication: RHEUMATOID ARTHRITIS
     Dosage: 200 MG, ORAL
     Route: 048
     Dates: end: 20041120
  4. ETODOLAC [Concomitant]
  5. MISOPROSTOL [Concomitant]
  6. ALFACALCIDOL (ALFACALCIDOL) [Concomitant]
  7. LICORICE/PEONY (LIQUORICE, PEONY) [Concomitant]
  8. ACETAMINOPHEN [Concomitant]
  9. TELITHROMYCIN (TELITHROMYCIN) [Concomitant]
  10. MAOUBUSHISAISHINTOU (HERBAL EXTRACTS NOS) [Concomitant]

REACTIONS (8)
  - FEELING ABNORMAL [None]
  - GENERAL PHYSICAL HEALTH DETERIORATION [None]
  - HEPATOCELLULAR DAMAGE [None]
  - HYPOPROTEINAEMIA [None]
  - INTERSTITIAL LUNG DISEASE [None]
  - LIVER DISORDER [None]
  - PANCYTOPENIA [None]
  - RESPIRATORY FAILURE [None]
